FAERS Safety Report 23431516 (Version 1)
Quarter: 2024Q1

REPORT INFORMATION
  Report Type: Spontaneous
  Country: US (occurrence: US)
  Receive Date: 20240123
  Receipt Date: 20240123
  Transmission Date: 20240410
  Serious: No
  Sender: FDA-Public Use
  Company Number: US-DRL-USA-LIT/USA/24/0001013

PATIENT
  Age: 23 Year
  Sex: Female

DRUGS (4)
  1. THIAMINE [Suspect]
     Active Substance: THIAMINE
     Indication: Vitamin B1 deficiency
     Route: 042
  2. METHIMAZOLE [Suspect]
     Active Substance: METHIMAZOLE
     Indication: Thyroid disorder
  3. PROPRANOLOL [Suspect]
     Active Substance: PROPRANOLOL HYDROCHLORIDE
     Indication: Thyroid disorder
  4. POTASSIUM [Suspect]
     Active Substance: POTASSIUM
     Indication: Electrolyte imbalance

REACTIONS (2)
  - Normal newborn [Recovered/Resolved]
  - Exposure during pregnancy [Recovered/Resolved]
